FAERS Safety Report 4714846-3 (Version None)
Quarter: 2005Q3

REPORT INFORMATION
  Report Type: 
  Country: None (occurrence: None)
  Receive Date: 20050714
  Receipt Date: 20050714
  Transmission Date: 20060218
  Serious: Yes (Life-Threatening)
  Sender: FDA-Public Use
  Company Number: None

PATIENT
  Sex: Female

DRUGS (1)
  1. ALBUMIN (HUMAN) [Suspect]
     Dosage: 100 ML ONE TIME INTRAVENOU
     Route: 042
     Dates: start: 20050709, end: 20050712

REACTIONS (1)
  - ANAPHYLACTIC REACTION [None]
